FAERS Safety Report 17678313 (Version 1)
Quarter: 2020Q2

REPORT INFORMATION
  Report Type: Spontaneous
  Country: US (occurrence: US)
  Receive Date: 20200417
  Receipt Date: 20200417
  Transmission Date: 20200714
  Serious: No
  Sender: FDA-Public Use
  Company Number: US-GW PHARMA-202004USGW01403

PATIENT

DRUGS (3)
  1. EPIDIOLEX [Suspect]
     Active Substance: CANNABIDIOL
     Indication: SEVERE MYOCLONIC EPILEPSY OF INFANCY
     Dosage: UNKNOWN DOSE
     Route: 048
     Dates: start: 202003
  2. LORCASERIN [Suspect]
     Active Substance: LORCASERIN HYDROCHLORIDE
     Indication: SEVERE MYOCLONIC EPILEPSY OF INFANCY
     Dosage: 2 DOSAGE FORM (TABLETS), QD
     Route: 048
     Dates: start: 2019, end: 20200214
  3. LORCASERIN [Suspect]
     Active Substance: LORCASERIN HYDROCHLORIDE
     Dosage: 1 DOSAGE FORM (TABLET), QD
     Route: 048
     Dates: start: 20200215, end: 20200301

REACTIONS (1)
  - Seizure [Not Recovered/Not Resolved]

NARRATIVE: CASE EVENT DATE: 202003
